FAERS Safety Report 23884545 (Version 2)
Quarter: 2024Q2

REPORT INFORMATION
  Report Type: Spontaneous
  Country: GB (occurrence: None)
  Receive Date: 20240522
  Receipt Date: 20240524
  Transmission Date: 20240716
  Serious: Yes (Death, Hospitalization, Other)
  Sender: FDA-Public Use
  Company Number: 2024A117235

PATIENT

DRUGS (1)
  1. DURVALUMAB [Suspect]
     Active Substance: DURVALUMAB

REACTIONS (16)
  - Disease progression [Fatal]
  - Toxicity to various agents [Fatal]
  - Neuropathy peripheral [Unknown]
  - Neuromuscular toxicity [Unknown]
  - Intestinal perforation [Unknown]
  - Hepatitis [Unknown]
  - Nephritis [Unknown]
  - Pneumonitis [Unknown]
  - Fatigue [Unknown]
  - Inflammation [Unknown]
  - COVID-19 [Unknown]
  - Rash [Unknown]
  - Transaminases increased [Unknown]
  - Blood creatinine increased [Unknown]
  - Dermatitis [Unknown]
  - Myositis [Unknown]
